FAERS Safety Report 8844055 (Version 1)
Quarter: 2012Q4

REPORT INFORMATION
  Report Type: 
  Country: DE (occurrence: DE)
  Receive Date: 20121016
  Receipt Date: 20121016
  Transmission Date: 20130627
  Serious: Yes (Other)
  Sender: FDA-Public Use
  Company Number: DE-PFIZER INC-2012251108

PATIENT
  Age: 70 Year
  Sex: Male

DRUGS (2)
  1. XALATAN [Suspect]
     Dosage: UNK
  2. SOTALOL [Concomitant]
     Dosage: 240 mg, UNK

REACTIONS (1)
  - Glaucoma [Unknown]
